FAERS Safety Report 18226277 (Version 1)
Quarter: 2020Q3

REPORT INFORMATION
  Report Type: Spontaneous
  Country: US (occurrence: US)
  Receive Date: 20200902
  Receipt Date: 20200902
  Transmission Date: 20201103
  Serious: No
  Sender: FDA-Public Use
  Company Number: None

PATIENT
  Age: 44 Year
  Sex: Male

DRUGS (1)
  1. TRETINOIN. [Suspect]
     Active Substance: TRETINOIN
     Dosage: ?          OTHER FREQUENCY:4 AM 5 PM;?
     Route: 048

REACTIONS (5)
  - Pruritus [None]
  - Fatigue [None]
  - Neuropathy peripheral [None]
  - Oral discomfort [None]
  - Pain [None]

NARRATIVE: CASE EVENT DATE: 20200902
